FAERS Safety Report 9041143 (Version 1)
Quarter: 2013Q1

REPORT INFORMATION
  Report Type: Spontaneous
  Country: US (occurrence: None)
  Receive Date: 20130124
  Receipt Date: 20130124
  Transmission Date: 20140127
  Serious: Yes (Life-Threatening)
  Sender: FDA-Public Use
  Company Number: None

PATIENT
  Age: 86 Year
  Sex: Female
  Weight: 77.11 kg

DRUGS (2)
  1. BENZONATATE [Suspect]
     Indication: BRONCHITIS
     Dosage: 100 MG  TAKE 1 OR 2  3 TIMES DAILY  MOUTH
     Route: 048
     Dates: start: 20121230
  2. BENZONATATE [Suspect]
     Indication: COUGH
     Dosage: 100 MG  TAKE 1 OR 2  3 TIMES DAILY  MOUTH
     Route: 048
     Dates: start: 20121230

REACTIONS (3)
  - Blood pressure increased [None]
  - Insomnia [None]
  - Somnambulism [None]
